FAERS Safety Report 25686731 (Version 1)
Quarter: 2025Q3

REPORT INFORMATION
  Report Type: Spontaneous
  Country: EU (occurrence: EU)
  Receive Date: 20250816
  Receipt Date: 20250816
  Transmission Date: 20251020
  Serious: Yes (Hospitalization)
  Sender: AUROBINDO
  Company Number: EU-GLAXOSMITHKLINE-CZ2022EME097525

PATIENT
  Age: 68 Year
  Sex: Male

DRUGS (5)
  1. PAROXETINE [Interacting]
     Active Substance: PAROXETINE
     Indication: Depression
     Dosage: 40 MILLIGRAM, ONCE A DAY(20 MG, BID)
     Route: 065
  2. RISPERIDONE [Interacting]
     Active Substance: RISPERIDONE
     Indication: Depression
     Dosage: 2 MILLIGRAM, ONCE A DAY(1 MG, BID)
     Route: 065
  3. PERINDOPRIL [Concomitant]
     Active Substance: PERINDOPRIL
     Indication: Product used for unknown indication
     Dosage: 8 MILLIGRAM, ONCE A DAY(4 MG, BID)
     Route: 065
  4. PREGABALIN [Concomitant]
     Active Substance: PREGABALIN
     Indication: Product used for unknown indication
     Dosage: 450 MILLIGRAM, ONCE A DAY(150 MG, TID)
     Route: 065
  5. ASPIRIN [Concomitant]
     Active Substance: ASPIRIN
     Indication: Product used for unknown indication
     Dosage: 100 MILLIGRAM, ONCE A DAY(100 MG, 1D)

REACTIONS (9)
  - Drug ineffective [Unknown]
  - Tremor [Not Recovered/Not Resolved]
  - Drug level increased [Unknown]
  - Dysarthria [Recovered/Resolved]
  - Bowel movement irregularity [Unknown]
  - Movement disorder [Unknown]
  - Psychiatric decompensation [Unknown]
  - Drug interaction [Unknown]
  - Incorrect dose administered [Unknown]
